FAERS Safety Report 20888409 (Version 1)
Quarter: 2022Q2

REPORT INFORMATION
  Report Type: Spontaneous
  Country: US (occurrence: US)
  Receive Date: 20220529
  Receipt Date: 20220529
  Transmission Date: 20220721
  Serious: No
  Sender: FDA-Public Use
  Company Number: US-JNJFOC-20220548131

PATIENT
  Age: 65 Year
  Sex: Male

DRUGS (4)
  1. INVEGA [Suspect]
     Active Substance: PALIPERIDONE
     Indication: Bipolar disorder
     Route: 048
  2. INVEGA [Suspect]
     Active Substance: PALIPERIDONE
     Indication: Schizophrenia
  3. INVEGA [Suspect]
     Active Substance: PALIPERIDONE
     Indication: Delusion
  4. INVEGA [Suspect]
     Active Substance: PALIPERIDONE
     Indication: Suicidal ideation

REACTIONS (1)
  - Drug ineffective [Unknown]
